FAERS Safety Report 4845502-9 (Version None)
Quarter: 2005Q4

REPORT INFORMATION
  Report Type: 
  Country: None (occurrence: None)
  Receive Date: 20051201
  Receipt Date: 20051123
  Transmission Date: 20060501
  Serious: Yes (Other)
  Sender: FDA-Public Use
  Company Number: 006132

PATIENT
  Age: 71 Year
  Sex: Female

DRUGS (6)
  1. MEDROXYPROGESTERONE ACETATE [Suspect]
     Dosage: ORAL
     Route: 048
     Dates: start: 19800101, end: 20020101
  2. ESTROPIPATE [Suspect]
     Dosage: ORAL
     Route: 048
     Dates: start: 19800101, end: 20020101
  3. PREMARIN [Suspect]
     Dosage: OAL
     Route: 048
     Dates: start: 19800101, end: 20020101
  4. PROVERA [Suspect]
     Dosage: ORAL
     Route: 048
     Dates: start: 19800101, end: 20020101
  5. PREMPRO [Suspect]
     Dosage: ORAL
     Route: 048
     Dates: start: 19800101, end: 20020101
  6. OGEN [Suspect]
     Dosage: ORAL
     Route: 048
     Dates: start: 19800101, end: 20020101

REACTIONS (3)
  - BREAST CANCER IN SITU [None]
  - OESTROGEN RECEPTOR ASSAY POSITIVE [None]
  - PROGESTERONE RECEPTOR ASSAY POSITIVE [None]
